FAERS Safety Report 8501156-1 (Version None)
Quarter: 2012Q3

REPORT INFORMATION
  Report Type: 
  Country: None (occurrence: None)
  Receive Date: 20120710
  Receipt Date: 20120702
  Transmission Date: 20120928
  Serious: Yes (Other)
  Sender: FDA-Public Use
  Company Number: US-ACTELION-A-NJ2012-65135

PATIENT

DRUGS (6)
  1. VENTAVIS [Suspect]
     Indication: PULMONARY ARTERIAL HYPERTENSION
     Dosage: UNK
     Route: 055
     Dates: start: 20120306
  2. TRACLEER [Concomitant]
     Indication: PULMONARY ARTERIAL HYPERTENSION
     Dosage: UNK
     Route: 048
     Dates: start: 20040823
  3. CALCIUM CHANNEL BLOCKERS [Concomitant]
  4. VENTAVIS [Suspect]
     Dosage: UNK
     Route: 055
     Dates: start: 20120101
  5. ASPIRIN [Concomitant]
  6. PLAVIX [Concomitant]

REACTIONS (13)
  - DIABETIC FOOT [None]
  - DIALYSIS [None]
  - THROAT IRRITATION [None]
  - COUGH [None]
  - EAR PAIN [None]
  - DIZZINESS POSTURAL [None]
  - FATIGUE [None]
  - DYSGEUSIA [None]
  - DIZZINESS [None]
  - HICCUPS [None]
  - FLUSHING [None]
  - HYPOTENSION [None]
  - DYSPNOEA [None]
